FAERS Safety Report 14567862 (Version 1)
Quarter: 2018Q1

REPORT INFORMATION
  Report Type: Spontaneous
  Country: US (occurrence: US)
  Receive Date: 20180223
  Receipt Date: 20180223
  Transmission Date: 20180509
  Serious: No
  Sender: FDA-Public Use
  Company Number: US-FERRINGPH-2017FE02585

PATIENT
  Sex: Female
  Weight: 31.75 kg

DRUGS (1)
  1. DDAVP [Suspect]
     Active Substance: DESMOPRESSIN ACETATE
     Indication: ENURESIS
     Dosage: 0.2 MG, DAILY
     Route: 048
     Dates: start: 201702

REACTIONS (1)
  - Inappropriate schedule of drug administration [Unknown]
